FAERS Safety Report 15861087 (Version 3)
Quarter: 2019Q1

REPORT INFORMATION
  Report Type: Spontaneous
  Country: US (occurrence: US)
  Receive Date: 20190124
  Receipt Date: 20190201
  Transmission Date: 20190417
  Serious: No
  Sender: FDA-Public Use
  Company Number: US-BEH-2019098550

PATIENT
  Sex: Male

DRUGS (31)
  1. PRIVIGEN [Suspect]
     Active Substance: HUMAN IMMUNOGLOBULIN G
     Indication: ORAL CANDIDIASIS
     Dosage: 600 ML, FOR 2 DAYS EVERY 4 WEEKS
     Route: 051
     Dates: start: 20140606
  2. OXYCONTIN [Concomitant]
     Active Substance: OXYCODONE HYDROCHLORIDE
     Dosage: 20 MG, UNK
     Route: 065
     Dates: start: 20190110
  3. VITAMIN D                          /00107901/ [Concomitant]
     Active Substance: ERGOCALCIFEROL
     Dosage: 50000 IU, UNK
     Route: 065
     Dates: start: 20181012
  4. MAG OXIDE [Concomitant]
     Active Substance: MAGNESIUM OXIDE
     Dosage: 400 MG, UNK
     Route: 065
     Dates: start: 20170106
  5. MIRALAX [Concomitant]
     Active Substance: POLYETHYLENE GLYCOL 3350
     Dosage: 3350 UNK, UNK
     Route: 065
     Dates: start: 20170106
  6. OXYCONTIN [Concomitant]
     Active Substance: OXYCODONE HYDROCHLORIDE
     Dosage: 30 MG, UNK
     Route: 065
     Dates: start: 20181231
  7. XYLOCAINE [Concomitant]
     Active Substance: LIDOCAINE HYDROCHLORIDE
     Dosage: 2 %, UNK
     Route: 065
     Dates: start: 20170106
  8. PRIVIGEN [Suspect]
     Active Substance: HUMAN IMMUNOGLOBULIN G
     Indication: IMMUNODEFICIENCY COMMON VARIABLE
     Dosage: UNK
     Route: 051
  9. OXYCODONE [Concomitant]
     Active Substance: OXYCODONE
     Dosage: 5 MG, UNK
     Route: 065
     Dates: start: 20161012
  10. POTASSIUM [Concomitant]
     Active Substance: POTASSIUM
     Dosage: 75 MG, UNK
     Route: 065
     Dates: start: 20181012
  11. ALBUTEROL                          /00139501/ [Concomitant]
     Active Substance: ALBUTEROL
     Dosage: 2 MG, UNK
     Route: 065
     Dates: start: 20161012
  12. ASPIRIN. [Concomitant]
     Active Substance: ASPIRIN
     Dosage: 1 MG, UNK
     Route: 065
     Dates: start: 20140602
  13. PREDNISONE. [Concomitant]
     Active Substance: PREDNISONE
     Dosage: 20 MG, UNK
     Route: 065
     Dates: start: 20080617
  14. RECLAST [Concomitant]
     Active Substance: ZOLEDRONIC ACID
     Dosage: 5/100ML
     Route: 065
     Dates: start: 20170108
  15. SINGULAIR [Concomitant]
     Active Substance: MONTELUKAST SODIUM
     Dosage: 10 MG, UNK
     Route: 065
     Dates: start: 20161012
  16. FLONASE [Concomitant]
     Active Substance: FLUTICASONE PROPIONATE
     Dosage: 0.05 %, UNK
     Route: 065
     Dates: start: 20090817
  17. MULTIVITAMIN                       /00097801/ [Concomitant]
     Active Substance: VITAMINS
     Dosage: UNK
     Route: 065
     Dates: start: 20170106
  18. TRILEPTAL [Concomitant]
     Active Substance: OXCARBAZEPINE
     Dosage: 300 MG, UNK
     Route: 065
     Dates: start: 20090817
  19. CARDIZEM CD [Concomitant]
     Active Substance: DILTIAZEM HYDROCHLORIDE
     Dosage: 240 MG/24
     Route: 065
     Dates: start: 20090817
  20. PREVACID [Concomitant]
     Active Substance: LANSOPRAZOLE
     Dosage: 30 MG, UNK
     Route: 065
     Dates: start: 20090617
  21. SPIRIVA [Concomitant]
     Active Substance: TIOTROPIUM BROMIDE MONOHYDRATE
     Dosage: UNK
     Route: 065
     Dates: start: 20090617
  22. SYMBICORT [Concomitant]
     Active Substance: BUDESONIDE\FORMOTEROL FUMARATE DIHYDRATE
     Dosage: 80-4.5
     Route: 065
     Dates: start: 20161012
  23. VOLTAREN [Concomitant]
     Active Substance: DICLOFENAC SODIUM
     Dosage: 1 %, UNK
     Route: 065
     Dates: start: 20170106
  24. PRIVIGEN [Suspect]
     Active Substance: HUMAN IMMUNOGLOBULIN G
     Dosage: UNK
     Route: 042
  25. CIALIS [Concomitant]
     Active Substance: TADALAFIL
     Dosage: 5 MG, UNK
     Route: 065
     Dates: start: 20170821
  26. COZAAR [Concomitant]
     Active Substance: LOSARTAN POTASSIUM
     Dosage: 50 MG, UNK
     Route: 065
     Dates: start: 20090617
  27. OXYCONTIN [Concomitant]
     Active Substance: OXYCODONE HYDROCHLORIDE
     Dosage: 30 MG, UNK
     Route: 065
     Dates: start: 20181130
  28. PLAQUENIL                          /00072602/ [Concomitant]
     Active Substance: HYDROXYCHLOROQUINE DIPHOSPHATE
     Dosage: 200 MG, UNK
     Route: 065
     Dates: start: 20090617
  29. RESTASIS [Concomitant]
     Active Substance: CYCLOSPORINE
     Dosage: 0.05 %, UNK
     Route: 065
     Dates: start: 20170106
  30. PRIVIGEN [Suspect]
     Active Substance: HUMAN IMMUNOGLOBULIN G
     Dosage: UNK
     Route: 051
  31. FERRO-SEQUELS [Concomitant]
     Active Substance: DOCUSATE SODIUM\FERROUS FUMARATE
     Dosage: 65-25MG
     Route: 065
     Dates: start: 20180820

REACTIONS (2)
  - Arthralgia [Unknown]
  - Headache [Unknown]
